FAERS Safety Report 16253774 (Version 3)
Quarter: 2019Q4

REPORT INFORMATION
  Report Type: Report from Study
  Country: US (occurrence: US)
  Receive Date: 20190430
  Receipt Date: 20191230
  Transmission Date: 20200122
  Serious: No
  Sender: FDA-Public Use
  Company Number: US-TEVA-2019-US-1045415

PATIENT
  Age: 53 Year
  Sex: Female
  Weight: 129 kg

DRUGS (21)
  1. CLONAZEPAM. [Concomitant]
     Active Substance: CLONAZEPAM
  2. METOPROLOL. [Concomitant]
     Active Substance: METOPROLOL
  3. OXYBUTYNIN. [Concomitant]
     Active Substance: OXYBUTYNIN CHLORIDE
  4. LUCIDIMINE [Concomitant]
  5. AJOVY [Suspect]
     Active Substance: FREMANEZUMAB-VFRM
     Indication: MIGRAINE
     Route: 058
     Dates: start: 201902, end: 20190411
  6. SPIRIVA [Concomitant]
     Active Substance: TIOTROPIUM BROMIDE MONOHYDRATE
  7. AMITRIPTYLINE [Concomitant]
     Active Substance: AMITRIPTYLINE
  8. KLONOPIN [Concomitant]
     Active Substance: CLONAZEPAM
  9. TRAZODONE [Concomitant]
     Active Substance: TRAZODONE HYDROCHLORIDE
  10. CALCIUM SUPPLEMENT [Concomitant]
     Active Substance: CALCIUM
  11. OXYCODONE [Concomitant]
     Active Substance: OXYCODONE
  12. LAMOTRIGINE. [Concomitant]
     Active Substance: LAMOTRIGINE
  13. QUETIAPINE. [Concomitant]
     Active Substance: QUETIAPINE
  14. PROTONIX [Concomitant]
     Active Substance: PANTOPRAZOLE SODIUM
  15. FLOVENT [Concomitant]
     Active Substance: FLUTICASONE PROPIONATE
  16. LEXAPRO [Concomitant]
     Active Substance: ESCITALOPRAM OXALATE
  17. COSENTYX [Concomitant]
     Active Substance: SECUKINUMAB
  18. LYRICA [Concomitant]
     Active Substance: PREGABALIN
  19. FLONASE [Concomitant]
     Active Substance: FLUTICASONE PROPIONATE
  20. MONTELUKAST [Concomitant]
     Active Substance: MONTELUKAST SODIUM
  21. ELETRIPTAN. [Concomitant]
     Active Substance: ELETRIPTAN

REACTIONS (2)
  - Urticaria [Recovering/Resolving]
  - Pruritus [Not Recovered/Not Resolved]

NARRATIVE: CASE EVENT DATE: 20190321
